FAERS Safety Report 10553728 (Version 2)
Quarter: 2014Q4

REPORT INFORMATION
  Report Type: Report from Study
  Country: SE (occurrence: SE)
  Receive Date: 20141030
  Receipt Date: 20141031
  Transmission Date: 20150529
  Serious: Yes (Hospitalization, Other)
  Sender: FDA-Public Use
  Company Number: SE-ROCHE-1480636

PATIENT
  Sex: Male

DRUGS (2)
  1. MORFIN [Concomitant]
     Active Substance: MORPHINE SULFATE
     Indication: PAIN
  2. ROACTEMRA [Suspect]
     Active Substance: TOCILIZUMAB
     Indication: RHEUMATOID ARTHRITIS
     Route: 042
     Dates: start: 201212

REACTIONS (3)
  - Abdominal pain [Recovering/Resolving]
  - Diverticulitis [Unknown]
  - Large intestine perforation [Unknown]

NARRATIVE: CASE EVENT DATE: 20141006
